FAERS Safety Report 10688335 (Version 1)
Quarter: 2014Q4

REPORT INFORMATION
  Report Type: Spontaneous
  Country: US (occurrence: None)
  Receive Date: 20141231
  Receipt Date: 20141231
  Transmission Date: 20150529
  Serious: Yes (Other)
  Sender: FDA-Public Use
  Company Number: US2014GSK041137

PATIENT
  Age: 47 Year
  Sex: Male

DRUGS (1)
  1. EPZICOM [Suspect]
     Active Substance: ABACAVIR SULFATE\LAMIVUDINE
     Indication: HIV INFECTION
     Dates: start: 201107

REACTIONS (1)
  - Brain neoplasm malignant [None]

NARRATIVE: CASE EVENT DATE: 201211
